FAERS Safety Report 11734930 (Version 1)
Quarter: 2015Q4

REPORT INFORMATION
  Report Type: Spontaneous
  Country: US (occurrence: US)
  Receive Date: 20151113
  Receipt Date: 20151113
  Transmission Date: 20160304
  Serious: No
  Sender: FDA-Public Use
  Company Number: US-GUERBET LLC-1044163

PATIENT
  Age: 66 Year
  Sex: Male
  Weight: 63.5 kg

DRUGS (1)
  1. OXILAN [Suspect]
     Active Substance: IOXILAN
     Indication: ANGIOGRAM
     Dates: start: 20070917, end: 20070917

REACTIONS (2)
  - Chest pain [Recovered/Resolved]
  - Electrocardiogram abnormal [Recovered/Resolved]

NARRATIVE: CASE EVENT DATE: 20070917
